FAERS Safety Report 13382744 (Version 5)
Quarter: 2017Q3

REPORT INFORMATION
  Report Type: Spontaneous
  Country: KR (occurrence: KR)
  Receive Date: 20170329
  Receipt Date: 20170726
  Transmission Date: 20171127
  Serious: Yes (Hospitalization, Other)
  Sender: FDA-Public Use
  Company Number: KR-009507513-1703KOR012011

PATIENT
  Age: 68 Year
  Sex: Male
  Weight: 45.9 kg

DRUGS (20)
  1. EMEND (FOSAPREPITANT DIMEGLUMINE) [Suspect]
     Active Substance: FOSAPREPITANT DIMEGLUMINE
     Dosage: 150 MG, ONCE
     Route: 042
     Dates: start: 20160810, end: 20160810
  2. ENDOXAN [Concomitant]
     Active Substance: CYCLOPHOSPHAMIDE
     Indication: LYMPHOMA
     Dosage: 1102 MG, ONCE, CYCLE 1
     Route: 042
     Dates: start: 20160720, end: 20160720
  3. VINCRISTINE SULFATE. [Concomitant]
     Active Substance: VINCRISTINE SULFATE
     Indication: LYMPHOPLASMACYTOID LYMPHOMA/IMMUNOCYTOMA
     Dosage: 2 MG, ONCE, CYCLE 1, STRENGTH: 1MG/2ML
     Route: 042
     Dates: start: 20160810, end: 20160810
  4. SOLONDO [Concomitant]
     Active Substance: PREDNISOLONE
     Indication: PREMEDICATION
     Dosage: 30 MG, TID (40MG FOR MORNING, 20MG FOR LUNCH AND DINNER TIME)
     Route: 048
     Dates: start: 20160720, end: 20160724
  5. SOLONDO [Concomitant]
     Active Substance: PREDNISOLONE
     Dosage: 30 MG, TID (40MG FOR MORNING, 20MG FOR LUNCH AND DINNER TIME
     Route: 048
     Dates: start: 20160810, end: 20160814
  6. TAZOPERAN [Concomitant]
     Indication: ANTIBIOTIC THERAPY
     Dosage: 3.375 G, QD
     Route: 042
     Dates: start: 20160720, end: 20160817
  7. MUCOPECT [Concomitant]
     Indication: PROPHYLAXIS
     Dosage: 1 TABLET, TID
     Route: 042
     Dates: start: 201607, end: 20160823
  8. PHAZYME (PANCREATIN (+) SIMETHICONE) [Concomitant]
     Indication: PROPHYLAXIS
     Dosage: 1 TABLET (95 MG), QD
     Route: 048
     Dates: start: 20160708, end: 20160710
  9. ATROVENT [Concomitant]
     Active Substance: IPRATROPIUM BROMIDE
     Indication: PROPHYLAXIS
     Dosage: 2 ML, QID, STRENGTH: 500MICROGRAMS/2ML
     Route: 055
     Dates: start: 20160720, end: 20160721
  10. DIFLUCAN [Concomitant]
     Active Substance: FLUCONAZOLE
     Indication: OESOPHAGEAL CANDIDIASIS
     Dosage: STRENGHT: 0.35G/35ML; 10 ML, QD
     Route: 048
     Dates: start: 201607, end: 20160706
  11. ENDOXAN [Concomitant]
     Active Substance: CYCLOPHOSPHAMIDE
     Indication: LYMPHOPLASMACYTOID LYMPHOMA/IMMUNOCYTOMA
     Dosage: 1102 MG, ONCE, CYCLE 2
     Route: 042
     Dates: start: 20160810, end: 20160818
  12. VINCRISTINE SULFATE. [Concomitant]
     Active Substance: VINCRISTINE SULFATE
     Indication: LYMPHOMA
     Dosage: 2 MG, ONCE, CYCLE 1 , STRENGTH: 1MG/2ML
     Route: 042
     Dates: start: 20160720, end: 20160720
  13. EMEND (FOSAPREPITANT DIMEGLUMINE) [Suspect]
     Active Substance: FOSAPREPITANT DIMEGLUMINE
     Indication: PROPHYLAXIS OF NAUSEA AND VOMITING
     Dosage: 150 MG, ONCE
     Route: 042
     Dates: start: 20160720, end: 20160720
  14. ALOXI [Concomitant]
     Active Substance: PALONOSETRON HYDROCHLORIDE
     Indication: ANTIEMETIC SUPPORTIVE CARE
     Dosage: 5 ML, ONCE
     Route: 042
     Dates: start: 20160720, end: 20160720
  15. ALOXI [Concomitant]
     Active Substance: PALONOSETRON HYDROCHLORIDE
     Indication: PREMEDICATION
     Dosage: 0.25 MG, ONCE
     Route: 042
     Dates: start: 20160810, end: 20160810
  16. FAMOTIDINE. [Concomitant]
     Active Substance: FAMOTIDINE
     Indication: PROPHYLAXIS
  17. MUCOMYST [Concomitant]
     Active Substance: ACETYLCYSTEINE
     Indication: PROPHYLAXIS
     Dosage: 800 MG, TID, STRENGTH: 800MG/4ML
     Route: 048
     Dates: start: 20160706
  18. DOXORUBICIN HYDROCHLORIDE. [Concomitant]
     Active Substance: DOXORUBICIN HYDROCHLORIDE
     Indication: LYMPHOMA
     Dosage: 73 MG, ONCE, CYCLE 1
     Route: 042
     Dates: start: 20160720, end: 20160720
  19. FAMOTIDINE. [Concomitant]
     Active Substance: FAMOTIDINE
     Indication: PROPHYLAXIS
     Dosage: 1 TABLET (20 MG), BID
     Route: 048
     Dates: start: 20160720, end: 20160722
  20. DOXORUBICIN HYDROCHLORIDE. [Concomitant]
     Active Substance: DOXORUBICIN HYDROCHLORIDE
     Indication: LYMPHOPLASMACYTOID LYMPHOMA/IMMUNOCYTOMA
     Dosage: 73 MG, ONCE, CYCLE 2
     Route: 042
     Dates: start: 20160810, end: 20160810

REACTIONS (5)
  - Diarrhoea [Recovered/Resolved]
  - Pain [Recovered/Resolved]
  - Febrile neutropenia [Recovered/Resolved]
  - Electrolyte imbalance [Recovered/Resolved]
  - Pneumonia [Recovered/Resolved]

NARRATIVE: CASE EVENT DATE: 20160721
